FAERS Safety Report 24351207 (Version 1)
Quarter: 2024Q3

REPORT INFORMATION
  Report Type: Report from Study
  Country: IT (occurrence: IT)
  Receive Date: 20240923
  Receipt Date: 20240923
  Transmission Date: 20241017
  Serious: No
  Sender: ROCHE
  Company Number: IT-ROCHE-3538414

PATIENT
  Age: 61 Year
  Sex: Female

DRUGS (9)
  1. TRASTUZUMAB [Suspect]
     Active Substance: TRASTUZUMAB
     Indication: Invasive ductal breast carcinoma
     Route: 065
  2. DOCETAXEL [Concomitant]
     Active Substance: DOCETAXEL\DOCETAXEL ANHYDROUS
  3. LAPATINIB [Concomitant]
     Active Substance: LAPATINIB
  4. CAPECITABINE [Concomitant]
     Active Substance: CAPECITABINE
  5. VINORELBINE [Concomitant]
     Active Substance: VINORELBINE TARTRATE
  6. PACLITAXEL [Concomitant]
     Active Substance: PACLITAXEL
  7. LETROZOLE [Concomitant]
     Active Substance: LETROZOLE
  8. FULVESTRANT [Concomitant]
     Active Substance: FULVESTRANT
  9. ADO-TRASTUZUMAB EMTANSINE [Concomitant]
     Active Substance: ADO-TRASTUZUMAB EMTANSINE

REACTIONS (1)
  - Systolic dysfunction [Not Recovered/Not Resolved]
